FAERS Safety Report 21301707 (Version 1)
Quarter: 2022Q3

REPORT INFORMATION
  Report Type: Spontaneous
  Country: US (occurrence: None)
  Receive Date: 20220906
  Receipt Date: 20220906
  Transmission Date: 20221027
  Serious: Yes (Hospitalization)
  Sender: FDA-Public Use
  Company Number: None

PATIENT
  Age: 39 Year
  Sex: Female

DRUGS (2)
  1. MIRTAZAPINE [Suspect]
     Active Substance: MIRTAZAPINE
     Indication: Post-traumatic stress disorder
     Dosage: FREQUENCY : AT BEDTIME;?
     Route: 048
     Dates: start: 20220609, end: 20220804
  2. TRAMADOL [Suspect]
     Active Substance: TRAMADOL
     Indication: Pain
     Dosage: FREQUENCY: QID
     Route: 048
     Dates: start: 20220726, end: 20220804

REACTIONS (16)
  - Nausea [None]
  - Muscle rigidity [None]
  - Aspartate aminotransferase increased [None]
  - Alanine aminotransferase increased [None]
  - Pain in extremity [None]
  - Arthralgia [None]
  - Back pain [None]
  - Arthralgia [None]
  - Hyperhidrosis [None]
  - Serotonin syndrome [None]
  - Insomnia [None]
  - Muscle spasms [None]
  - Myalgia [None]
  - Arthralgia [None]
  - Vomiting [None]
  - Hepatic enzyme increased [None]

NARRATIVE: CASE EVENT DATE: 20220804
